FAERS Safety Report 7738818-X (Version None)
Quarter: 2011Q3

REPORT INFORMATION
  Report Type: 
  Country: None (occurrence: None)
  Receive Date: 20110909
  Receipt Date: 20110905
  Transmission Date: 20111222
  Serious: Yes (Hospitalization, Other)
  Sender: FDA-Public Use
  Company Number: NL-AMGEN-NLDSP2011044182

PATIENT
  Sex: Female

DRUGS (14)
  1. ENBREL [Suspect]
     Indication: PSORIATIC ARTHROPATHY
     Dosage: 25 MG, WEEKLY
     Dates: start: 20080101
  2. PREDNISONE [Concomitant]
     Dosage: UNK
  3. MELOXICAM [Concomitant]
     Dosage: UNK
  4. PANTOPRAZOLE [Concomitant]
     Dosage: UNK
  5. FOSTER                             /06206901/ [Concomitant]
     Dosage: UNK
  6. FOLIC ACID [Concomitant]
     Dosage: UNK
  7. PRAVASTATIN [Concomitant]
     Dosage: UNK
  8. PROPRANOLOL [Concomitant]
     Dosage: UNK
  9. METHOTREXATE SODIUM [Concomitant]
     Dosage: UNK
  10. LYRICA [Concomitant]
     Dosage: UNK
  11. DOVOBET [Concomitant]
     Dosage: UNK
  12. NASONEX [Concomitant]
     Dosage: UNK
  13. RANITAL                            /00550801/ [Concomitant]
     Dosage: UNK
  14. LOSARTAN POTASSIUM [Concomitant]
     Dosage: UNK

REACTIONS (3)
  - HAEMATOMA [None]
  - BACTERIAL INFECTION [None]
  - APPENDICITIS [None]
